FAERS Safety Report 10568009 (Version 2)
Quarter: 2015Q2

REPORT INFORMATION
  Report Type: Spontaneous
  Country: US (occurrence: None)
  Receive Date: 20141104
  Receipt Date: 20150514
  Transmission Date: 20150821
  Serious: Yes (Other)
  Sender: FDA-Public Use
  Company Number: US2014GSK014223

PATIENT
  Age: 53 Year
  Sex: Female

DRUGS (18)
  1. DDI (DIDANOSINE) [Suspect]
     Active Substance: DIDANOSINE
     Indication: HIV INFECTION
  2. DARUNAVIR (DARUNAVIR) [Suspect]
     Active Substance: DARUNAVIR
     Indication: HIV INFECTION
  3. KIVEXA [Suspect]
     Active Substance: ABACAVIR SULFATE\LAMIVUDINE
     Indication: HIV INFECTION
     Dates: start: 1996
  4. SEPTRA (SULFAMETHOXAZOLE + TRIMETHOPRIM) [Concomitant]
  5. PANTOPRAZOLE [Concomitant]
     Active Substance: PANTOPRAZOLE SODIUM
  6. COMBIVIR [Suspect]
     Active Substance: LAMIVUDINE\ZIDOVUDINE
     Indication: HIV INFECTION
     Dates: start: 1996
  7. TENOFOVIR DISOPROXIL FUMARATE (TENOFOVIR DISOPROXIL FUMARATE(TENOFOVIR DISOPROXIL FUMARATE)? [Suspect]
     Active Substance: TENOFOVIR DISOPROXIL FUMARATE
     Indication: HIV INFECTION
     Dates: start: 20131028, end: 20140410
  8. VIREAD [Suspect]
     Active Substance: TENOFOVIR DISOPROXIL FUMARATE
     Indication: PRODUCT USED FOR UNKNOWN INDICATION
     Dates: start: 200308, end: 200511
  9. KALETRA [Suspect]
     Active Substance: LOPINAVIR\RITONAVIR
     Indication: HIV INFECTION
  10. D4T (STAVUDINE) [Suspect]
     Active Substance: STAVUDINE
     Indication: HIV INFECTION
     Dates: start: 1996
  11. FLUCONAZOLE. [Concomitant]
     Active Substance: FLUCONAZOLE
  12. AZITHROMYCIN [Concomitant]
     Active Substance: AZITHROMYCIN ANHYDROUS
  13. NELFINAVIR (NELFINAVIR) [Suspect]
     Active Substance: NELFINAVIR
     Indication: HIV INFECTION
  14. EFAVIRENZ (EFAVIRENZ) [Suspect]
     Active Substance: EFAVIRENZ
     Indication: HIV INFECTION
  15. ETRAVIRINE (ETRAVIRINE) [Suspect]
     Active Substance: ETRAVIRINE
     Indication: HIV INFECTION
  16. INDINAVIR (INDINAVIR) [Suspect]
     Active Substance: INDINAVIR
     Indication: HIV INFECTION
  17. STRIBILD [Suspect]
     Active Substance: COBICISTAT\ELVITEGRAVIR\EMTRICITABINE\TENOFOVIR DISOPROXIL FUMARATE
     Indication: HIV INFECTION
     Dates: start: 20131028, end: 20140410
  18. TRICIVIR (ABACAVIR SULPHATE + LAMVUDINE + ZIDOVUDINE) [Suspect]
     Active Substance: ABACAVIR SULFATE\LAMIVUDINE\ZIDOVUDINE
     Indication: HIV INFECTION

REACTIONS (4)
  - Virologic failure [None]
  - Viral mutation identified [None]
  - Drug ineffective [None]
  - Multiple-drug resistance [None]
